FAERS Safety Report 9227538 (Version 1)
Quarter: 2013Q2

REPORT INFORMATION
  Report Type: Spontaneous
  Country: US (occurrence: None)
  Receive Date: 20130411
  Receipt Date: 20130411
  Transmission Date: 20140414
  Serious: Yes (Hospitalization)
  Sender: FDA-Public Use
  Company Number: None

PATIENT
  Age: 89 Year
  Sex: Female
  Weight: 97.6 kg

DRUGS (15)
  1. ASA [Suspect]
     Indication: PROPHYLAXIS
     Dosage: CHRONIC
     Route: 048
  2. PREDNISONE [Suspect]
     Dosage: CHRONIC
     Route: 048
  3. BUMEX [Concomitant]
  4. IMIPRAMINE [Concomitant]
  5. ATENOLOL [Concomitant]
  6. ACTONAL [Concomitant]
  7. LACTULOSE [Concomitant]
  8. SENOKOT S [Concomitant]
  9. ULORIC [Concomitant]
  10. GELNIQUE [Concomitant]
  11. DURAGESIC [Concomitant]
  12. LIBRIUM [Concomitant]
  13. LOTEMAX [Concomitant]
  14. VENTOLIN [Concomitant]
  15. KCL [Concomitant]

REACTIONS (4)
  - Asthenia [None]
  - Haemorrhagic anaemia [None]
  - Delirium [None]
  - Cardiac failure congestive [None]
